FAERS Safety Report 15479068 (Version 3)
Quarter: 2019Q1

REPORT INFORMATION
  Report Type: Report from Study
  Country: HU (occurrence: HU)
  Receive Date: 20181009
  Receipt Date: 20190125
  Transmission Date: 20190417
  Serious: Yes (Death, Life-Threatening)
  Sender: FDA-Public Use
  Company Number: HU-PFIZER INC-2018406182

PATIENT
  Age: 68 Year
  Sex: Female
  Weight: 85 kg

DRUGS (24)
  1. MILURIT [Concomitant]
     Active Substance: ALLOPURINOL
     Dosage: UNK
     Dates: start: 2005
  2. SUPRASTINE [Concomitant]
     Indication: PREMEDICATION
     Dosage: UNK
     Dates: start: 20180625, end: 20180807
  3. DINUTUXIMAB [Suspect]
     Active Substance: DINUTUXIMAB
     Indication: SMALL CELL LUNG CANCER
     Dosage: UNK, CYCLIC
     Route: 041
     Dates: start: 20180625
  4. DIAPREL [Concomitant]
     Active Substance: GLICLAZIDE
     Dosage: UNK
     Dates: start: 2005
  5. METFORMIN [Concomitant]
     Active Substance: METFORMIN HYDROCHLORIDE
     Dosage: UNK
     Dates: start: 2005
  6. OROSET [Concomitant]
     Dosage: UNK
     Dates: start: 20180714
  7. PARACETAMOL [Concomitant]
     Active Substance: ACETAMINOPHEN
     Indication: PREMEDICATION
     Dosage: UNK
     Dates: start: 20180625, end: 20180807
  8. CLEXANE [Concomitant]
     Active Substance: ENOXAPARIN SODIUM
     Dosage: UNK
     Dates: start: 201712
  9. LOPEDIUM [Concomitant]
     Active Substance: LOPERAMIDE
     Dosage: UNK
     Dates: start: 20180719
  10. SITAGLIPTINE [Concomitant]
     Active Substance: SITAGLIPTIN
     Dosage: UNK
     Dates: start: 2005
  11. SOLU-MEDROL [Concomitant]
     Active Substance: METHYLPREDNISOLONE SODIUM SUCCINATE
     Indication: PREMEDICATION
     Dosage: UNK
     Dates: start: 20180625, end: 20180807
  12. IRINOTECAN HCL [Suspect]
     Active Substance: IRINOTECAN HYDROCHLORIDE
     Indication: SMALL CELL LUNG CANCER
     Dosage: UNK, CYCLIC
     Route: 041
     Dates: start: 20180625
  13. IRINOTECAN HCL [Suspect]
     Active Substance: IRINOTECAN HYDROCHLORIDE
     Dosage: 651 MG, TOTAL DAILY DOSE, CYCLE 3
     Route: 041
     Dates: start: 20180807, end: 20180816
  14. BETASERC [BETAHISTINE] [Concomitant]
     Dosage: UNK
     Dates: start: 201501
  15. CORYOL [CARVEDILOL] [Concomitant]
     Dosage: UNK
     Dates: start: 2005
  16. LORDESTIN [Concomitant]
     Dosage: UNK
     Dates: start: 20180730
  17. ATROPINE. [Concomitant]
     Active Substance: ATROPINE
     Indication: PREMEDICATION
     Dosage: UNK
     Dates: start: 20180626, end: 20180807
  18. ZOFRAN [Concomitant]
     Active Substance: ONDANSETRON HYDROCHLORIDE
     Indication: PREMEDICATION
     Dosage: UNK
     Dates: start: 20180625, end: 20180807
  19. DOLFORIN [Concomitant]
     Active Substance: FENTANYL
     Dosage: UNK
     Dates: start: 20180807
  20. MEGYRINA [Concomitant]
     Dosage: UNK
     Dates: start: 20180717
  21. SUPRASTIN [Concomitant]
     Active Substance: CHLOROPYRAMINE HYDROCHLORIDE
     Dosage: UNK
     Dates: start: 20180723, end: 20180729
  22. DINUTUXIMAB [Suspect]
     Active Substance: DINUTUXIMAB
     Dosage: 29 MG, TOTAL DAILY DOSE, CYCLE 3
     Route: 041
     Dates: start: 20180807, end: 20180816
  23. LUCETAM [Concomitant]
     Dosage: UNK
     Dates: start: 201501
  24. NACL [Concomitant]
     Active Substance: SODIUM CHLORIDE
     Indication: PREMEDICATION
     Dosage: UNK
     Dates: start: 20180625, end: 20180807

REACTIONS (1)
  - Neutropenia [Fatal]

NARRATIVE: CASE EVENT DATE: 20180818
